FAERS Safety Report 4591174-0 (Version None)
Quarter: 2005Q1

REPORT INFORMATION
  Report Type: 
  Country: None (occurrence: None)
  Receive Date: 20050224
  Receipt Date: 20050224
  Transmission Date: 20050727
  Serious: Yes (Other)
  Sender: FDA-Public Use
  Company Number: None

PATIENT
  Sex: Male
  Weight: 98.8842 kg

DRUGS (3)
  1. PLETAL [Suspect]
     Indication: CORONARY ARTERY DISEASE
     Dates: start: 20020917
  2. PLETAL [Suspect]
     Indication: HYPERTENSION
     Dates: start: 20020917
  3. PLETAL [Suspect]
     Indication: RENAL FAILURE CHRONIC
     Dates: start: 20020917

REACTIONS (1)
  - RASH [None]
